FAERS Safety Report 5251600-0 (Version None)
Quarter: 2007Q1

REPORT INFORMATION
  Report Type: 
  Country: None (occurrence: None)
  Receive Date: 20070228
  Receipt Date: 20060925
  Transmission Date: 20070707
  Serious: No
  Sender: FDA-Public Use
  Company Number: US-GLAXOSMITHKLINE-A0621314A

PATIENT
  Sex: Male

DRUGS (5)
  1. LAMICTAL [Suspect]
     Indication: BIPOLAR DISORDER
     Dosage: 100MG TWICE PER DAY
     Route: 048
  2. SEROQUEL [Concomitant]
  3. ATENOLOL [Concomitant]
  4. KLONOPIN [Concomitant]
  5. LOVASTATIN [Concomitant]

REACTIONS (1)
  - RASH [None]
